FAERS Safety Report 16983329 (Version 3)
Quarter: 2020Q1

REPORT INFORMATION
  Report Type: Spontaneous
  Country: US (occurrence: US)
  Receive Date: 20191101
  Receipt Date: 20200121
  Transmission Date: 20200409
  Serious: Yes (Other)
  Sender: FDA-Public Use
  Company Number: US-PFIZER INC-2019473113

PATIENT
  Age: 60 Year
  Sex: Female
  Weight: 75.73 kg

DRUGS (1)
  1. IBRANCE [Suspect]
     Active Substance: PALBOCICLIB
     Indication: BREAST CANCER FEMALE
     Dosage: 125 MG, CYCLIC (DAILY 21 OUT OF 28 DAYS)
     Route: 048
     Dates: start: 201712

REACTIONS (15)
  - Diarrhoea [Unknown]
  - Headache [Unknown]
  - Dizziness [Unknown]
  - Muscle spasms [Unknown]
  - Fatigue [Unknown]
  - Gingival bleeding [Unknown]
  - Dehydration [Unknown]
  - Bone pain [Unknown]
  - Oral pain [Unknown]
  - Gingival abscess [Unknown]
  - Neuropathy peripheral [Unknown]
  - Hot flush [Unknown]
  - Dysphagia [Unknown]
  - Memory impairment [Unknown]
  - Nausea [Unknown]
